FAERS Safety Report 6731374-4 (Version None)
Quarter: 2010Q2

REPORT INFORMATION
  Report Type: 
  Country: None (occurrence: None)
  Receive Date: 20100518
  Receipt Date: 20100518
  Transmission Date: 20101027
  Serious: Yes (Hospitalization)
  Sender: FDA-Public Use
  Company Number: None

PATIENT
  Age: 70 Year
  Sex: Female
  Weight: 66.6788 kg

DRUGS (3)
  1. CARBOPLATIN [Suspect]
     Dosage: 300MG IV 2 WEEKS
     Route: 042
     Dates: start: 20061006, end: 20061215
  2. CARBOPLATIN [Suspect]
     Dosage: 300MG IV 2 WEEKS
     Route: 042
     Dates: start: 20080415, end: 20080603
  3. CARBOPLATIN [Suspect]
     Dosage: 300MG IV 2 WEEKS
     Route: 042
     Dates: start: 20100429, end: 20100503

REACTIONS (10)
  - BLOOD PRESSURE DECREASED [None]
  - BLOOD PRESSURE IMMEASURABLE [None]
  - COLD SWEAT [None]
  - FEELING ABNORMAL [None]
  - HEART RATE INCREASED [None]
  - NAUSEA [None]
  - OXYGEN SATURATION DECREASED [None]
  - PULSE ABNORMAL [None]
  - SKIN DISCOLOURATION [None]
  - UNRESPONSIVE TO STIMULI [None]
